FAERS Safety Report 17697021 (Version 1)
Quarter: 2020Q2

REPORT INFORMATION
  Report Type: Spontaneous
  Country: CN (occurrence: CN)
  Receive Date: 20200423
  Receipt Date: 20200423
  Transmission Date: 20200714
  Serious: Yes (Other)
  Sender: FDA-Public Use
  Company Number: CN-ASTRAZENECA-2020SE53314

PATIENT
  Age: 23011 Day
  Sex: Male
  Weight: 60 kg

DRUGS (4)
  1. ACETYLCYSTEINE. [Suspect]
     Active Substance: ACETYLCYSTEINE
     Indication: ANTIINFLAMMATORY THERAPY
     Route: 055
     Dates: start: 20200329
  2. BUDESONIDE SUSPENSION [Suspect]
     Active Substance: BUDESONIDE
     Indication: ANTIINFLAMMATORY THERAPY
     Route: 055
     Dates: start: 20200329
  3. BUDESONIDE SUSPENSION [Suspect]
     Active Substance: BUDESONIDE
     Indication: ASTHMA
     Route: 055
     Dates: start: 20200329
  4. ACETYLCYSTEINE. [Suspect]
     Active Substance: ACETYLCYSTEINE
     Indication: ASTHMA
     Route: 055
     Dates: start: 20200329

REACTIONS (2)
  - Asphyxia [Recovering/Resolving]
  - Asthma [Recovering/Resolving]

NARRATIVE: CASE EVENT DATE: 20200329
